FAERS Safety Report 11852878 (Version 1)
Quarter: 2015Q4

REPORT INFORMATION
  Report Type: Report from Study
  Country: DE (occurrence: DE)
  Receive Date: 20151218
  Receipt Date: 20151218
  Transmission Date: 20160305
  Serious: Yes (Hospitalization)
  Sender: FDA-Public Use
  Company Number: DE-BAXALTA-2013BAX010279

PATIENT
  Age: 49 Year
  Weight: 83 kg

DRUGS (2)
  1. ADVATE [Suspect]
     Active Substance: ANTIHEMOPHILIC FACTOR, HUMAN RECOMBINANT
     Indication: FACTOR VIII DEFICIENCY
     Dosage: 1000 IU, 3X A WEEK
     Route: 042
     Dates: start: 20050824, end: 20120613
  2. ADVATE [Suspect]
     Active Substance: ANTIHEMOPHILIC FACTOR, HUMAN RECOMBINANT
     Indication: PROPHYLAXIS
     Dosage: 1000 IU, UNK
     Route: 042
     Dates: start: 20120905, end: 20120905

REACTIONS (2)
  - Chronic sinusitis [Recovered/Resolved]
  - Chronic sinusitis [Recovered/Resolved]

NARRATIVE: CASE EVENT DATE: 20120612
